FAERS Safety Report 7986455-4 (Version None)
Quarter: 2011Q4

REPORT INFORMATION
  Report Type: 
  Country: None (occurrence: None)
  Receive Date: 20111216
  Receipt Date: 20110721
  Transmission Date: 20120403
  Serious: No
  Sender: FDA-Public Use
  Company Number: US-BRISTOL-MYERS SQUIBB COMPANY-15906175

PATIENT
  Sex: Female

DRUGS (2)
  1. ABILIFY [Suspect]
     Dosage: 2 MG(INITIAL DOSE) AND INCREASED TO 10 MG
  2. LEXAPRO [Concomitant]

REACTIONS (1)
  - OEDEMA [None]
